FAERS Safety Report 5427118-9 (Version None)
Quarter: 2007Q3

REPORT INFORMATION
  Report Type: 
  Country: None (occurrence: None)
  Receive Date: 20070824
  Receipt Date: 20070824
  Transmission Date: 20080115
  Serious: Yes (Hospitalization)
  Sender: FDA-Public Use
  Company Number: None

PATIENT
  Age: 49 Year
  Sex: Male
  Weight: 110.6777 kg

DRUGS (1)
  1. LISINOPRIL [Suspect]
     Indication: DIABETES MELLITUS

REACTIONS (4)
  - ANGIOEDEMA [None]
  - DYSPNOEA [None]
  - PULMONARY CONGESTION [None]
  - WHEEZING [None]
